FAERS Safety Report 14615048 (Version 1)
Quarter: 2018Q1

REPORT INFORMATION
  Report Type: Spontaneous
  Country: None (occurrence: FR)
  Receive Date: 20180308
  Receipt Date: 20180308
  Transmission Date: 20180509
  Serious: Yes (Hospitalization)
  Sender: FDA-Public Use
  Company Number: FR-MERCK KGAA-2043341

PATIENT
  Age: 62 Year
  Sex: Female

DRUGS (2)
  1. NOVOTHYROX [Suspect]
     Active Substance: LEVOTHYROXINE SODIUM
     Indication: AUTOIMMUNE THYROIDITIS
  2. NOVOTHYROX [Suspect]
     Active Substance: LEVOTHYROXINE SODIUM

REACTIONS (25)
  - Chest pain [None]
  - Skin fissures [None]
  - Dizziness [None]
  - Palpitations [None]
  - Nausea [None]
  - Choroidal neovascularisation [None]
  - Micturition urgency [None]
  - Confusional state [None]
  - Migraine [Recovered/Resolved]
  - Loss of personal independence in daily activities [None]
  - Eyelid ptosis [None]
  - Dehydration [None]
  - Dry skin [None]
  - Diarrhoea [None]
  - Amnesia [None]
  - Fatigue [None]
  - Dry eye [None]
  - Emotional distress [None]
  - Agoraphobia [None]
  - Social problem [None]
  - Back pain [None]
  - Alopecia [None]
  - Psychiatric symptom [None]
  - Sluggishness [None]
  - Anxiety [None]

NARRATIVE: CASE EVENT DATE: 2017
